FAERS Safety Report 5871137-5 (Version None)
Quarter: 2008Q3

REPORT INFORMATION
  Report Type: 
  Country: None (occurrence: None)
  Receive Date: 20080902
  Receipt Date: 20080825
  Transmission Date: 20090109
  Serious: Yes (Other)
  Sender: FDA-Public Use
  Company Number: 2008SP016546

PATIENT
  Age: 22 Year
  Sex: Male
  Weight: 63.1 kg

DRUGS (2)
  1. PEG-INTRON [Suspect]
     Indication: BONE SARCOMA
     Dosage: 0.5 MCG/KG;QW;SC, 1 MCG/KG;QW;SC, 63 MCG;
     Route: 058
     Dates: start: 20080314
  2. PEG-INTRON [Suspect]
     Indication: BONE SARCOMA
     Dosage: 0.5 MCG/KG;QW;SC, 1 MCG/KG;QW;SC, 63 MCG;
     Route: 058
     Dates: start: 20080805

REACTIONS (4)
  - ABNORMAL BEHAVIOUR [None]
  - CONDITION AGGRAVATED [None]
  - MANIA [None]
  - SPEECH DISORDER [None]
